FAERS Safety Report 9421317 (Version 1)
Quarter: 2013Q3

REPORT INFORMATION
  Report Type: Spontaneous
  Country: US (occurrence: None)
  Receive Date: 20130719
  Receipt Date: 20130719
  Transmission Date: 20140515
  Serious: Yes (Hospitalization)
  Sender: FDA-Public Use
  Company Number: 2013036976

PATIENT
  Sex: Female
  Weight: 50.8 kg

DRUGS (3)
  1. HIZENTRA (IMMUNOGLOBULIN HUMAN NORMAL) [Suspect]
     Indication: HYPOGAMMAGLOBULINAEMIA
     Route: 058
  2. DIPHENYDRAMINE (DIPHENYDRAMINE) [Concomitant]
  3. EPI PEN (EPINEPHRINE) [Concomitant]

REACTIONS (2)
  - Dizziness [None]
  - Confusional state [None]
